FAERS Safety Report 25399107 (Version 1)
Quarter: 2025Q2

REPORT INFORMATION
  Report Type: Spontaneous
  Country: CN (occurrence: CN)
  Receive Date: 20250605
  Receipt Date: 20250605
  Transmission Date: 20250717
  Serious: Yes (Hospitalization)
  Sender: ALEXION PHARMACEUTICALS
  Company Number: CN-ASTRAZENECA-202506CHN000023CN

PATIENT
  Age: 72 Year
  Weight: 40 kg

DRUGS (1)
  1. TAGRISSO [Suspect]
     Active Substance: OSIMERTINIB
     Indication: Neoplasm
     Dosage: 8 MILLIGRAM, QD

REACTIONS (1)
  - Embolism [Recovering/Resolving]
